FAERS Safety Report 15439388 (Version 1)
Quarter: 2018Q3

REPORT INFORMATION
  Report Type: Spontaneous
  Country: US (occurrence: US)
  Receive Date: 20180924
  Receipt Date: 20180924
  Transmission Date: 20181010
  Serious: Yes (Death)
  Sender: FDA-Public Use
  Company Number: None

PATIENT
  Age: 71 Year
  Sex: Male
  Weight: 123.24 kg

DRUGS (1)
  1. ALBUTEIN [Suspect]
     Active Substance: ALBUMIN HUMAN
     Indication: HEPATIC CIRRHOSIS
     Route: 042
     Dates: start: 20180920, end: 20180920

REACTIONS (2)
  - Anaphylactic shock [None]
  - Respiratory failure [None]

NARRATIVE: CASE EVENT DATE: 20180920
